FAERS Safety Report 5991386-5 (Version None)
Quarter: 2008Q4

REPORT INFORMATION
  Report Type: 
  Country: None (occurrence: None)
  Receive Date: 20081202
  Receipt Date: 20071016
  Transmission Date: 20090506
  Serious: Yes (Disabling, Other)
  Sender: FDA-Public Use
  Company Number: WAES 0703USA04385

PATIENT
  Age: 74 Year
  Sex: Male
  Weight: 97.977 kg

DRUGS (2)
  1. FOSAMAX [Suspect]
     Indication: OSTEOPENIA
     Dosage: 70 MG/WKY/PO
     Route: 048
     Dates: start: 20010214, end: 20050315
  2. FOSAMAX [Suspect]
     Indication: OSTEOPOROSIS
     Dosage: 70 MG/WKY/PO
     Route: 048
     Dates: start: 20010214, end: 20050315

REACTIONS (9)
  - CATHETER RELATED COMPLICATION [None]
  - EATING DISORDER [None]
  - JOINT SPRAIN [None]
  - MASTICATION DISORDER [None]
  - OSTEOMYELITIS [None]
  - OSTEONECROSIS [None]
  - RESORPTION BONE INCREASED [None]
  - SPINAL COLUMN STENOSIS [None]
  - TOOTH LOSS [None]
